FAERS Safety Report 23527767 (Version 1)
Quarter: 2024Q1

REPORT INFORMATION
  Report Type: Spontaneous
  Country: US (occurrence: US)
  Receive Date: 20240215
  Receipt Date: 20240215
  Transmission Date: 20240410
  Serious: Yes (Other)
  Sender: FDA-Public Use
  Company Number: US-The Proactiv LLC-2153271

PATIENT
  Age: 79 Year
  Sex: Male

DRUGS (4)
  1. PROACTIV SOLUTION RENEWING CLEANSER [Suspect]
     Active Substance: BENZOYL PEROXIDE
     Route: 061
     Dates: start: 2023, end: 202401
  2. PROACTIV REVITALIZING TONER COMBINATION THERAPY ACNE TREATMENT [Suspect]
     Active Substance: SALICYLIC ACID
     Route: 061
     Dates: start: 2023, end: 202401
  3. COSMETICS [Suspect]
     Active Substance: COSMETICS
     Route: 061
     Dates: start: 2023, end: 202401
  4. PROACTIV REPAIRING TREATMENT [Suspect]
     Active Substance: BENZOYL PEROXIDE
     Route: 061
     Dates: start: 2023, end: 202401

REACTIONS (5)
  - Dry skin [Recovering/Resolving]
  - Scar [Recovering/Resolving]
  - Skin cancer [Recovering/Resolving]
  - Rash [Recovering/Resolving]
  - Skin erosion [Recovering/Resolving]

NARRATIVE: CASE EVENT DATE: 20230101
